FAERS Safety Report 6127403-1 (Version None)
Quarter: 2009Q1

REPORT INFORMATION
  Report Type: 
  Country: None (occurrence: None)
  Receive Date: 20090323
  Receipt Date: 20090312
  Transmission Date: 20090719
  Serious: Yes (Other)
  Sender: FDA-Public Use
  Company Number: PHEH2007US11365

PATIENT
  Sex: Female
  Weight: 63.492 kg

DRUGS (5)
  1. ZOMETA [Suspect]
     Indication: OSTEOPOROSIS
     Dosage: UNK, ONCE/SINGLE
     Dates: start: 20040804
  2. ZOMETA [Suspect]
     Dosage: UNK, ONCE/SINGLE
     Dates: start: 20050914
  3. LIDOCAINE 0.5% W/ EPINEPHRINE 1:200,000 [Suspect]
     Indication: ENDODONTIC PROCEDURE
     Dosage: 3.5 ML, ONCE/SINGLE
     Dates: start: 20060620
  4. SEPTOCAINE [Concomitant]
     Dosage: 1.7 ML, ONCE/SINGLE
     Dates: start: 20060427
  5. MARCAINE [Concomitant]
     Dosage: 1.8 ML, ONCE/SINGLE
     Dates: start: 20070427

REACTIONS (20)
  - ALVEOLAR OSTEITIS [None]
  - ARTIFICIAL CROWN PROCEDURE [None]
  - BACK PAIN [None]
  - DEBRIDEMENT [None]
  - DENTAL CARIES [None]
  - DENTAL OPERATION [None]
  - DENTAL PULP DISORDER [None]
  - DIZZINESS [None]
  - ENDODONTIC PROCEDURE [None]
  - JAW DISORDER [None]
  - LOSS OF CONSCIOUSNESS [None]
  - MALAISE [None]
  - MASTICATION DISORDER [None]
  - MYALGIA [None]
  - OSTEONECROSIS [None]
  - PAIN IN JAW [None]
  - TOOTH DISORDER [None]
  - TOOTH EXTRACTION [None]
  - TOOTH LOSS [None]
  - TOOTH REPAIR [None]
